FAERS Safety Report 8570655-9 (Version None)
Quarter: 2012Q3

REPORT INFORMATION
  Report Type: 
  Country: None (occurrence: None)
  Receive Date: 20120804
  Receipt Date: 20120726
  Transmission Date: 20120928
  Serious: No
  Sender: FDA-Public Use
  Company Number: US-ASTRAZENECA-2012SE53066

PATIENT
  Age: 39 Year
  Sex: Male
  Weight: 117.9 kg

DRUGS (2)
  1. SYMBICORT [Suspect]
     Indication: WHEEZING
     Dosage: 160/4.5 MCG 2 PUFFS TWO TIMES A DAY
     Route: 055
     Dates: start: 20120721, end: 20120723
  2. WATER PILL [Concomitant]

REACTIONS (1)
  - DYSPNOEA [None]
